FAERS Safety Report 5271845-3 (Version None)
Quarter: 2007Q1

REPORT INFORMATION
  Report Type: 
  Country: None (occurrence: None)
  Receive Date: 20070321
  Receipt Date: 20070313
  Transmission Date: 20070707
  Serious: Yes (Other)
  Sender: FDA-Public Use
  Company Number: BE-PFIZER INC-2007019775

PATIENT
  Sex: Male

DRUGS (2)
  1. CHAMPIX [Suspect]
     Indication: EX-SMOKER
     Route: 048
  2. SALAZOPYRINE [Suspect]
     Route: 048

REACTIONS (1)
  - PANCREATITIS [None]
